FAERS Safety Report 6174107-5 (Version None)
Quarter: 2009Q2

REPORT INFORMATION
  Report Type: 
  Country: None (occurrence: None)
  Receive Date: 20090430
  Receipt Date: 20090423
  Transmission Date: 20091009
  Serious: Yes (Other)
  Sender: FDA-Public Use
  Company Number: PHHY2009CA15592

PATIENT
  Sex: Female

DRUGS (6)
  1. EXJADE [Suspect]
     Indication: IRON OVERLOAD
     Dosage: 1250 MG DAILY
     Route: 048
     Dates: start: 20090408, end: 20090412
  2. FOLATE SODIUM [Concomitant]
  3. MEGACE [Concomitant]
  4. DILTIAZEM [Concomitant]
  5. PREVACID [Concomitant]
  6. MOTILIUM [Concomitant]

REACTIONS (2)
  - DIARRHOEA [None]
  - OESOPHAGITIS [None]
